FAERS Safety Report 15916259 (Version 1)
Quarter: 2019Q1

REPORT INFORMATION
  Report Type: Spontaneous
  Country: GB (occurrence: GB)
  Receive Date: 20190205
  Receipt Date: 20190205
  Transmission Date: 20190417
  Serious: No
  Sender: FDA-Public Use
  Company Number: None

PATIENT
  Age: 52 Year
  Sex: Female
  Weight: 70 kg

DRUGS (5)
  1. NATURE-THROID [Suspect]
     Active Substance: THYROID, PORCINE
     Indication: HYPOTHYROIDISM
     Dosage: 3 GRAINS PER DAY; ORAL
     Route: 048
     Dates: end: 20181125
  2. VITAMIN D [Concomitant]
     Active Substance: CHOLECALCIFEROL
  3. ARMOUR THYROID [Concomitant]
     Active Substance: THYROID, PORCINE
  4. OZEMAPROZOLE [Concomitant]
  5. VITAMIN B12 [Concomitant]
     Active Substance: CYANOCOBALAMIN

REACTIONS (2)
  - Drug level decreased [None]
  - Drug ineffective [None]

NARRATIVE: CASE EVENT DATE: 20181116
